FAERS Safety Report 20330706 (Version 2)
Quarter: 2022Q1

REPORT INFORMATION
  Report Type: Spontaneous
  Country: US (occurrence: US)
  Receive Date: 20220113
  Receipt Date: 20220225
  Transmission Date: 20220424
  Serious: No
  Sender: FDA-Public Use
  Company Number: US-GSKCCFUS-Case-01261448_AE-73819

PATIENT
  Age: 52 Year
  Sex: Female

DRUGS (1)
  1. SOTROVIMAB [Suspect]
     Active Substance: SOTROVIMAB
     Indication: Product used for unknown indication
     Dosage: 500 MG, Z, ONCE
     Dates: start: 20211229

REACTIONS (4)
  - Pain in extremity [Not Recovered/Not Resolved]
  - Myalgia [Unknown]
  - Muscular weakness [Unknown]
  - Condition aggravated [Not Recovered/Not Resolved]

NARRATIVE: CASE EVENT DATE: 20211229
